FAERS Safety Report 17800669 (Version 2)
Quarter: 2020Q2

REPORT INFORMATION
  Report Type: Spontaneous
  Country: US (occurrence: US)
  Receive Date: 20200518
  Receipt Date: 20200626
  Transmission Date: 20200714
  Serious: Yes (Death, Hospitalization, Other)
  Sender: FDA-Public Use
  Company Number: US-009507513-2005USA004288

PATIENT
  Sex: Male
  Weight: 63.04 kg

DRUGS (3)
  1. JANUVIA [Suspect]
     Active Substance: SITAGLIPTIN PHOSPHATE
     Dosage: 50 MILLIGRAM, QD
     Route: 048
     Dates: start: 20180331, end: 20180613
  2. JANUVIA [Suspect]
     Active Substance: SITAGLIPTIN PHOSPHATE
     Indication: TYPE 2 DIABETES MELLITUS
     Dosage: 100 MILLIGRAM, ONCE DAILY
     Route: 048
     Dates: start: 20160801, end: 20170112
  3. JANUVIA [Suspect]
     Active Substance: SITAGLIPTIN PHOSPHATE
     Dosage: 50 MILLIGRAM, ONCE DAILY
     Route: 048
     Dates: start: 20170112, end: 20180401

REACTIONS (22)
  - Type IIa hyperlipidaemia [Unknown]
  - Neoplasm prostate [Unknown]
  - Rhinitis allergic [Unknown]
  - Ischaemic cardiomyopathy [Unknown]
  - Bile duct obstruction [Unknown]
  - Pancreatic carcinoma [Unknown]
  - Cholelithiasis [Unknown]
  - Lymphadenopathy [Unknown]
  - Biliary dilatation [Unknown]
  - Diabetes mellitus inadequate control [Unknown]
  - Wrong technique in product usage process [Unknown]
  - Granuloma [Unknown]
  - Hyperglycaemia [Not Recovered/Not Resolved]
  - Sinus node dysfunction [Unknown]
  - Prostatomegaly [Unknown]
  - Nodule [Unknown]
  - Pleural effusion [Unknown]
  - Emphysema [Unknown]
  - Death [Fatal]
  - Pancreatolithiasis [Unknown]
  - Hypothyroidism [Unknown]
  - Procedural pain [Unknown]

NARRATIVE: CASE EVENT DATE: 20170112
